FAERS Safety Report 9251565 (Version 2)
Quarter: 2013Q3

REPORT INFORMATION
  Report Type: Spontaneous
  Country: US (occurrence: US)
  Receive Date: 20130424
  Receipt Date: 20130823
  Transmission Date: 20140515
  Serious: No
  Sender: FDA-Public Use
  Company Number: US-PFIZER INC-2013100297

PATIENT
  Age: 76 Year
  Sex: Male

DRUGS (1)
  1. SUTENT [Suspect]
     Indication: THYROID CANCER
     Dosage: 37.5 MG, UNK
     Dates: start: 20110413, end: 20130819

REACTIONS (4)
  - Arthropathy [Unknown]
  - Off label use [Unknown]
  - Disease progression [Unknown]
  - Thyroid cancer [Unknown]
